FAERS Safety Report 10304920 (Version 1)
Quarter: 2014Q3

REPORT INFORMATION
  Report Type: Report from Study
  Country: US (occurrence: US)
  Receive Date: 20140715
  Receipt Date: 20140715
  Transmission Date: 20150326
  Serious: Yes (Hospitalization)
  Sender: FDA-Public Use
  Company Number: PHEH2014US013890

PATIENT
  Age: 60 Year
  Sex: Male

DRUGS (2)
  1. WARFARIN [Concomitant]
     Active Substance: WARFARIN
     Dosage: UNK UKN, UNK
  2. GLEEVEC [Suspect]
     Active Substance: IMATINIB MESYLATE
     Indication: NEOPLASM
     Dosage: 400 MG, EVERY OTHER DAY
     Route: 048
     Dates: start: 20120202

REACTIONS (1)
  - Cardiac disorder [Recovering/Resolving]

NARRATIVE: CASE EVENT DATE: 20140501
